FAERS Safety Report 9944642 (Version 1)
Quarter: 2014Q1

REPORT INFORMATION
  Report Type: Spontaneous
  Country: BR (occurrence: BR)
  Receive Date: 20140303
  Receipt Date: 20140303
  Transmission Date: 20141002
  Serious: Yes (Death)
  Sender: FDA-Public Use
  Company Number: BR-B.I. PHARMACEUTICALS,INC./RIDGEFIELD-2014-BI-08737BR

PATIENT
  Age: 64 Year
  Sex: Male
  Weight: 66 kg

DRUGS (11)
  1. SPIRIVA RESPIMAT [Suspect]
     Indication: LUNG DISORDER
     Dosage: 2 PUF
     Route: 055
     Dates: start: 201312, end: 20140219
  2. CLOPIDOGREL BISULPHATE [Concomitant]
     Route: 048
  3. METFORMIN CHLORIDRATE [Concomitant]
     Route: 048
  4. ATENOLOL [Concomitant]
     Route: 048
  5. DIAMICRON [Concomitant]
     Route: 048
  6. BACTRIN F [Concomitant]
     Route: 048
  7. ISOSSORBIDE MONITRATE [Concomitant]
     Route: 048
  8. LISINOPRIL [Concomitant]
     Route: 048
  9. ATORVASTATIN CALCICA [Concomitant]
     Route: 048
  10. INDACATEROL [Concomitant]
     Route: 048
  11. AAS INFANTILE [Concomitant]
     Route: 048

REACTIONS (6)
  - Acute respiratory failure [Fatal]
  - Shock haemorrhagic [Fatal]
  - Gastrointestinal haemorrhage [Fatal]
  - Liver disorder [Fatal]
  - Diabetes mellitus [Fatal]
  - Cardiac failure [Fatal]
